FAERS Safety Report 7336730-1 (Version None)
Quarter: 2011Q1

REPORT INFORMATION
  Report Type: 
  Country: None (occurrence: None)
  Receive Date: 20110308
  Receipt Date: 20110228
  Transmission Date: 20110831
  Serious: Yes (Hospitalization)
  Sender: FDA-Public Use
  Company Number: US-BIOGENIDEC-2010BI041191

PATIENT
  Age: 53 Year
  Sex: Female

DRUGS (6)
  1. ANTIBIOTICS (NOS) [Concomitant]
     Indication: CYSTITIS
     Dates: start: 20100901
  2. TYSABRI [Suspect]
     Route: 042
     Dates: start: 20110222
  3. PROVIGIL [Concomitant]
     Dates: end: 20110201
  4. TYSABRI [Suspect]
     Route: 042
     Dates: start: 20030201, end: 20050201
  5. STEROIDS (NOS) [Concomitant]
  6. TYSABRI [Suspect]
     Indication: MULTIPLE SCLEROSIS
     Route: 042
     Dates: start: 20100420, end: 20100923

REACTIONS (6)
  - EMOTIONAL DISORDER [None]
  - FATIGUE [None]
  - CYSTITIS [None]
  - ENTERITIS INFECTIOUS [None]
  - ORAL CANDIDIASIS [None]
  - INSOMNIA [None]
